FAERS Safety Report 6246115-7 (Version None)
Quarter: 2009Q2

REPORT INFORMATION
  Report Type: 
  Country: None (occurrence: None)
  Receive Date: 20090626
  Receipt Date: 20090311
  Transmission Date: 20091009
  Serious: No
  Sender: FDA-Public Use
  Company Number: A0772809A

PATIENT
  Age: 46 Year
  Sex: Male

DRUGS (5)
  1. IMITREX [Suspect]
     Indication: MIGRAINE
     Dosage: 100MG AS REQUIRED
     Route: 048
  2. ELAVIL [Suspect]
     Dosage: 25MG PER DAY
     Dates: start: 20080701
  3. ACIPHEX [Concomitant]
  4. NASACORT [Concomitant]
  5. LIPITOR [Concomitant]

REACTIONS (1)
  - MUSCLE TWITCHING [None]
